FAERS Safety Report 10341151 (Version 1)
Quarter: 2014Q3

REPORT INFORMATION
  Report Type: Spontaneous
  Country: US (occurrence: US)
  Receive Date: 20140724
  Receipt Date: 20140724
  Transmission Date: 20150326
  Serious: Yes (Hospitalization)
  Sender: FDA-Public Use
  Company Number: US-BIOMARINAP-US-2014-103720

PATIENT
  Age: 12 Year
  Sex: Female
  Weight: 18.5 kg

DRUGS (1)
  1. VIMIZIM [Suspect]
     Active Substance: ELOSULFASE ALFA
     Indication: MUCOPOLYSACCHARIDOSIS IV
     Dosage: 2 MG/KG, QW
     Route: 041
     Dates: start: 20140424

REACTIONS (1)
  - Congenital knee deformity [Not Recovered/Not Resolved]

NARRATIVE: CASE EVENT DATE: 20140717
